FAERS Safety Report 5309303-X (Version None)
Quarter: 2007Q2

REPORT INFORMATION
  Report Type: 
  Country: None (occurrence: None)
  Receive Date: 20070424
  Receipt Date: 20070424
  Transmission Date: 20071010
  Serious: Yes (Life-Threatening)
  Sender: FDA-Public Use
  Company Number: None

PATIENT
  Age: 12 Year
  Sex: Female
  Weight: 31.1 kg

DRUGS (4)
  1. NORDITROPIN NORDIFLEX [Suspect]
     Indication: GROWTH HORMONE DEFICIENCY
     Dosage: 1.350MG QOD SQ 1.275MG QOD SQ
     Route: 058
     Dates: start: 20060612, end: 20070418
  2. CORTEF [Concomitant]
  3. CARBATROL [Concomitant]
  4. SYNTHROID [Concomitant]

REACTIONS (1)
  - MEDULLOBLASTOMA RECURRENT [None]
